FAERS Safety Report 9240253 (Version 1)
Quarter: 2013Q2

REPORT INFORMATION
  Report Type: Spontaneous
  Country: US (occurrence: US)
  Receive Date: 20130418
  Receipt Date: 20130418
  Transmission Date: 20140414
  Serious: No
  Sender: FDA-Public Use
  Company Number: US-SANOFI-AVENTIS-2012SA046606

PATIENT
  Age: 88 Year
  Sex: Female

DRUGS (1)
  1. ENOXAPARIN SODIUM - WINTHROP [Suspect]
     Indication: THROMBOSIS
     Route: 065
     Dates: start: 2011

REACTIONS (3)
  - Rash macular [Not Recovered/Not Resolved]
  - Injection site bruising [Recovered/Resolved]
  - Injection site nodule [Recovered/Resolved]
